FAERS Safety Report 6864016-8 (Version None)
Quarter: 2010Q3

REPORT INFORMATION
  Report Type: 
  Country: None (occurrence: None)
  Receive Date: 20100721
  Receipt Date: 20080502
  Transmission Date: 20110219
  Serious: No
  Sender: FDA-Public Use
  Company Number: US-PFIZER INC-2008021974

PATIENT
  Sex: Female
  Weight: 136.1 kg

DRUGS (8)
  1. CHANTIX [Suspect]
     Indication: SMOKING CESSATION THERAPY
     Dates: start: 20080224
  2. TOPAMAX [Concomitant]
  3. LYRICA [Concomitant]
  4. FENTANYL [Concomitant]
  5. LEXAPRO [Concomitant]
  6. HYDROCODONE [Concomitant]
  7. ZANAFLEX [Concomitant]
  8. PRILOSEC [Concomitant]

REACTIONS (2)
  - RESPIRATORY DISORDER [None]
  - THROAT IRRITATION [None]
